FAERS Safety Report 6914685-9 (Version None)
Quarter: 2010Q3

REPORT INFORMATION
  Report Type: 
  Country: None (occurrence: None)
  Receive Date: 20100804
  Receipt Date: 20100726
  Transmission Date: 20110219
  Serious: Yes (Other)
  Sender: FDA-Public Use
  Company Number: 103578

PATIENT
  Sex: Female

DRUGS (1)
  1. METHOTREXATE [Suspect]
     Indication: PSORIATIC ARTHROPATHY
     Dosage: 1ML SUBCUTANEOUSLY, ONCE WEEKLY
     Route: 058

REACTIONS (2)
  - MEDICATION ERROR [None]
  - PRODUCT DOSAGE FORM ISSUE [None]
